FAERS Safety Report 12977532 (Version 1)
Quarter: 2016Q4

REPORT INFORMATION
  Report Type: Report from Study
  Country: CA (occurrence: CA)
  Receive Date: 20161128
  Receipt Date: 20161128
  Transmission Date: 20170207
  Serious: Yes (Other)
  Sender: FDA-Public Use
  Company Number: CA-AMGEN-CANSL2016165468

PATIENT
  Age: 47 Year
  Sex: Female
  Weight: 100 kg

DRUGS (3)
  1. ENBREL [Suspect]
     Active Substance: ETANERCEPT
     Indication: PSORIATIC ARTHROPATHY
     Dosage: 50 MG, QWK
     Route: 065
     Dates: start: 201509
  2. TRAMADOL. [Concomitant]
     Active Substance: TRAMADOL
     Dosage: 100 UNK, BID
  3. CYCLOSPORIN [Concomitant]
     Active Substance: CYCLOSPORINE
     Dosage: 100 MG, BID
     Route: 048

REACTIONS (5)
  - Breast cancer [Unknown]
  - Enostosis [Not Recovered/Not Resolved]
  - C-reactive protein abnormal [Unknown]
  - Psoriatic arthropathy [Unknown]
  - Arthritis [Not Recovered/Not Resolved]
